FAERS Safety Report 4821242-7 (Version None)
Quarter: 2005Q4

REPORT INFORMATION
  Report Type: 
  Country: None (occurrence: None)
  Receive Date: 20051107
  Receipt Date: 20051031
  Transmission Date: 20060501
  Serious: Yes (Hospitalization, Other)
  Sender: FDA-Public Use
  Company Number: ZA-BRISTOL-MYERS SQUIBB COMPANY-13161922

PATIENT
  Age: 43 Year
  Sex: Female

DRUGS (5)
  1. STOCRIN [Suspect]
     Indication: HIV INFECTION
     Route: 048
     Dates: start: 20050110
  2. STAVUDINE [Suspect]
     Indication: HIV INFECTION
     Route: 048
     Dates: start: 20050110
  3. LAMIVUDINE [Suspect]
     Indication: HIV INFECTION
     Route: 048
     Dates: start: 20050110
  4. VITAMINS [Concomitant]
     Dates: start: 20040922
  5. BACTRIM [Concomitant]
     Dates: start: 20040922

REACTIONS (2)
  - BLOOD GLUCOSE INCREASED [None]
  - LACTIC ACIDOSIS [None]
